FAERS Safety Report 13937994 (Version 6)
Quarter: 2019Q1

REPORT INFORMATION
  Report Type: Spontaneous
  Country: FI (occurrence: FI)
  Receive Date: 20170905
  Receipt Date: 20190211
  Transmission Date: 20190417
  Serious: Yes (Hospitalization, Other)
  Sender: FDA-Public Use
  Company Number: FI-SA-2017SA157688

PATIENT
  Age: 27 Year
  Sex: Female

DRUGS (7)
  1. VENLAFAXINE [Concomitant]
     Active Substance: VENLAFAXINE HYDROCHLORIDE
     Dosage: UNK
  2. HYDROXYZINE [Concomitant]
     Active Substance: HYDROXYZINE HYDROCHLORIDE
     Indication: INSOMNIA
     Dosage: 25 MG,QD
     Route: 048
  3. SOLU-MEDROL [Concomitant]
     Active Substance: METHYLPREDNISOLONE SODIUM SUCCINATE
     Indication: PROPHYLAXIS
     Dosage: 1 G,QD
     Route: 042
     Dates: start: 20170717, end: 20170719
  4. ACLOVIR [Concomitant]
     Indication: ANTIVIRAL PROPHYLAXIS
     Dosage: 800 MG,QD
     Route: 048
  5. SOMAC [Concomitant]
     Active Substance: PANTOPRAZOLE SODIUM
     Indication: PROPHYLAXIS
     Dosage: 40 MG,QD
     Route: 048
     Dates: start: 20170717
  6. LEMTRADA [Suspect]
     Active Substance: ALEMTUZUMAB
     Indication: MULTIPLE SCLEROSIS
     Dosage: 12 MG,QD
     Route: 041
     Dates: start: 20170717, end: 20170719
  7. PARACETAMOL [Concomitant]
     Active Substance: ACETAMINOPHEN
     Indication: PROPHYLAXIS
     Dosage: 1 G,QD
     Route: 048
     Dates: start: 20170717

REACTIONS (15)
  - Gallbladder oedema [Recovered/Resolved]
  - Cholecystitis [Unknown]
  - Hyperaesthesia [Unknown]
  - Abdominal pain [Recovered/Resolved]
  - Platelet count increased [Unknown]
  - Hepatotoxicity [Recovered/Resolved]
  - Ascites [Recovered/Resolved]
  - Dyspnoea [Unknown]
  - Liver function test increased [Recovered/Resolved]
  - Ultrasound scan abnormal [Recovered/Resolved]
  - Alanine aminotransferase increased [Recovered/Resolved]
  - External ear disorder [Unknown]
  - Condition aggravated [Unknown]
  - Transaminases increased [Recovering/Resolving]
  - Gallbladder enlargement [Recovered/Resolved]

NARRATIVE: CASE EVENT DATE: 201707
